FAERS Safety Report 6966962-3 (Version None)
Quarter: 2010Q3

REPORT INFORMATION
  Report Type: 
  Country: None (occurrence: None)
  Receive Date: 20100906
  Receipt Date: 20100825
  Transmission Date: 20110219
  Serious: Yes (Hospitalization, Other)
  Sender: FDA-Public Use
  Company Number: PHHY2010JP51270

PATIENT
  Age: 68 Year
  Sex: Male

DRUGS (4)
  1. NEORAL [Suspect]
     Indication: PSORIASIS
     Dosage: 100 MG DAILY
     Route: 048
     Dates: start: 20100601
  2. AMARYL [Suspect]
     Indication: DIABETES MELLITUS
     Dosage: UNK
     Route: 048
     Dates: start: 20100101, end: 20100730
  3. ACTOS [Suspect]
     Indication: DIABETES MELLITUS
     Dosage: UNK
     Route: 048
     Dates: start: 20100101, end: 20100730
  4. STEROIDS NOS [Concomitant]

REACTIONS (4)
  - BLOOD GLUCOSE INCREASED [None]
  - TREATMENT NONCOMPLIANCE [None]
  - VIITH NERVE PARALYSIS [None]
  - VISION BLURRED [None]
